FAERS Safety Report 8708576 (Version 2)
Quarter: 2013Q2

REPORT INFORMATION
  Report Type: Spontaneous
  Country: JP (occurrence: JP)
  Receive Date: 20120806
  Receipt Date: 20130408
  Transmission Date: 20140414
  Serious: Yes (Death)
  Sender: FDA-Public Use
  Company Number: JP-PFIZER INC-2012187602

PATIENT
  Age: 4 Decade
  Sex: Female
  Weight: 59 kg

DRUGS (5)
  1. SERTRALINE HCL [Suspect]
     Dosage: UNK
  2. AMOXAPINE [Suspect]
     Dosage: UNK
  3. ZOLPIDEM TARTRATE [Suspect]
     Dosage: UNK
  4. MIRTAZAPINE [Suspect]
     Dosage: UNK
  5. CHLORPROMAZINE [Suspect]
     Dosage: UNK

REACTIONS (6)
  - Toxicity to various agents [Fatal]
  - Macule [None]
  - Pallor [None]
  - Muscle rigidity [None]
  - Visceral congestion [None]
  - Overdose [None]
